FAERS Safety Report 17353511 (Version 5)
Quarter: 2020Q4

REPORT INFORMATION
  Report Type: Spontaneous
  Country: US (occurrence: US)
  Receive Date: 20200131
  Receipt Date: 20201002
  Transmission Date: 20210113
  Serious: Yes (Other)
  Sender: FDA-Public Use
  Company Number: US-AMGEN-USASP2020015170

PATIENT
  Age: 66 Year
  Sex: Male
  Weight: 72.11 kg

DRUGS (1)
  1. EVENITY [Suspect]
     Active Substance: ROMOSOZUMAB-AQQG
     Indication: PRODUCT USED FOR UNKNOWN INDICATION
     Dosage: 210 MILLIGRAM
     Route: 065
     Dates: start: 20190520

REACTIONS (9)
  - Spondylolisthesis [Unknown]
  - Blood test abnormal [Recovering/Resolving]
  - Arthritis [Unknown]
  - Incision site pain [Recovered/Resolved]
  - Rectal haemorrhage [Not Recovered/Not Resolved]
  - Pelvic haematoma [Not Recovered/Not Resolved]
  - Inguinal hernia [Unknown]
  - Bladder trabeculation [Unknown]
  - Spondylolysis [Unknown]

NARRATIVE: CASE EVENT DATE: 2019
